FAERS Safety Report 5279307-4 (Version None)
Quarter: 2007Q1

REPORT INFORMATION
  Report Type: 
  Country: None (occurrence: None)
  Receive Date: 20070328
  Receipt Date: 20060503
  Transmission Date: 20070707
  Serious: No
  Sender: FDA-Public Use
  Company Number: US-AMGEN-US177755

PATIENT
  Sex: Female
  Weight: 72.2 kg

DRUGS (6)
  1. NEULASTA [Suspect]
     Indication: CHEMOTHERAPY
     Route: 058
     Dates: start: 20060421
  2. ADRIAMYCIN PFS [Concomitant]
     Route: 065
     Dates: start: 20060420
  3. CYTOXAN [Concomitant]
     Route: 065
     Dates: start: 20060420
  4. ATIVAN [Concomitant]
     Route: 065
     Dates: start: 20060420
  5. ZOFRAN [Concomitant]
     Route: 065
  6. DECADRON [Concomitant]
     Route: 065
     Dates: start: 20060420

REACTIONS (2)
  - PRURITUS [None]
  - URTICARIA [None]
